FAERS Safety Report 17842597 (Version 1)
Quarter: 2020Q2

REPORT INFORMATION
  Report Type: Spontaneous
  Country: FR (occurrence: FR)
  Receive Date: 20200529
  Receipt Date: 20200529
  Transmission Date: 20200714
  Serious: Yes (Hospitalization)
  Sender: FDA-Public Use
  Company Number: NVSC2020FR147120

PATIENT
  Age: 97 Year
  Sex: Male
  Weight: 60.5 kg

DRUGS (2)
  1. RAMIPRIL ALMUS [Suspect]
     Active Substance: RAMIPRIL
     Indication: CARDIAC FAILURE
     Dosage: 1.25 MG, QD
     Route: 048
     Dates: start: 20191213
  2. ENTRESTO [Suspect]
     Active Substance: SACUBITRIL\VALSARTAN
     Indication: CARDIAC FAILURE
     Dosage: 98 MG, QD
     Route: 048
     Dates: start: 20191104, end: 20200122

REACTIONS (5)
  - Confusional state [Recovered/Resolved with Sequelae]
  - Product prescribing error [Recovered/Resolved]
  - Hypotension [Recovered/Resolved with Sequelae]
  - Product prescribing issue [Recovered/Resolved]
  - Wrong drug [Recovered/Resolved]

NARRATIVE: CASE EVENT DATE: 20191213
